FAERS Safety Report 19389105 (Version 2)
Quarter: 2021Q2

REPORT INFORMATION
  Report Type: Spontaneous
  Country: US (occurrence: US)
  Receive Date: 20210608
  Receipt Date: 20210617
  Transmission Date: 20210717
  Serious: Yes (Life-Threatening, Hospitalization, Other)
  Sender: FDA-Public Use
  Company Number: US-SUN PHARMACEUTICAL INDUSTRIES LTD-2021R1-299199

PATIENT
  Age: 25 Year
  Sex: Female

DRUGS (3)
  1. N?ACETYLCYSTEINE [Suspect]
     Active Substance: ACETYLCYSTEINE
     Indication: OVERDOSE
     Dosage: 150 MG/KG , UNK
     Route: 065
  2. QUETIAPINE. [Suspect]
     Active Substance: QUETIAPINE
     Indication: PRODUCT USED FOR UNKNOWN INDICATION
     Dosage: UNK
     Route: 065
  3. ACETAMINOPHEN. [Suspect]
     Active Substance: ACETAMINOPHEN
     Indication: PRODUCT USED FOR UNKNOWN INDICATION
     Dosage: UNK
     Route: 065

REACTIONS (5)
  - Intentional overdose [Unknown]
  - Live birth [Unknown]
  - Hypoxia [Unknown]
  - Somnolence [Unknown]
  - Exposure during pregnancy [Unknown]
